FAERS Safety Report 26207312 (Version 1)
Quarter: 2025Q4

REPORT INFORMATION
  Report Type: Spontaneous
  Country: GB (occurrence: GB)
  Receive Date: 20251229
  Receipt Date: 20251229
  Transmission Date: 20260118
  Serious: Yes (Congenital Anomaly, Other)
  Sender: TORRENT PHARMA INC.
  Company Number: None

PATIENT
  Age: 37 Week

DRUGS (14)
  1. QUETIAPINE [Suspect]
     Active Substance: QUETIAPINE
     Indication: Product used for unknown indication
     Dosage: 50 MILLIGRAMS, QD, FILM COATED TABLET ON 20-01-2015
     Route: 064
  2. ALBUTEROL [Suspect]
     Active Substance: ALBUTEROL
     Indication: Product used for unknown indication
     Dosage: 2 PUFFS AS NEEDED ON 28-MAY-2024
     Route: 064
  3. AMOXICILLIN [Suspect]
     Active Substance: AMOXICILLIN
     Indication: Product used for unknown indication
     Dosage: 1 THREE TIMES A DAY FOR 1 WEEK FROM 25-SEP-2025 FOR 1 DAY
     Route: 064
  4. BECLOMETHASONE DIPROPIONATE\CAMPHOR [Suspect]
     Active Substance: BECLOMETHASONE DIPROPIONATE\CAMPHOR
     Indication: Product used for unknown indication
     Dosage: (DOSE/DAILY DOSE): 200 MICROGRAM IN / 400 MICROGRAM, BID ON 28-MAY-2024
     Route: 064
  5. CLOTRIMAZOLE [Suspect]
     Active Substance: CLOTRIMAZOLE
     Indication: Product used for unknown indication
     Dosage: 200MG AT NIGHT FOR 6 NIGHTS FROM 04-AUG-2025 TO 11-AUG-2025 FOR 8 DAYS
     Route: 064
  6. CHOLECALCIFEROL [Suspect]
     Active Substance: CHOLECALCIFEROL
     Indication: Product used for unknown indication
     Dosage: 400 UNITS ONCE DAILY ON 20/03/2025
     Route: 064
  7. DULOXETINE [Suspect]
     Active Substance: DULOXETINE
     Indication: Product used for unknown indication
     Dosage: MOTHER INDICATION: UNKNOWN DOSE ON 23-FEB-2023
     Route: 064
  8. ENOXAPARIN SODIUM [Suspect]
     Active Substance: ENOXAPARIN SODIUM
     Indication: Product used for unknown indication
     Dosage: 40 MILLIGRAM, ON 14-MAY-2025
     Route: 064
  9. LACTULOSE [Suspect]
     Active Substance: LACTULOSE
     Indication: Product used for unknown indication
     Dosage: 5 MILLILITRE, ON 09-APR-2025
     Route: 064
  10. POLYETHYLENE GLYCOLS [Suspect]
     Active Substance: POLYETHYLENE GLYCOLS
     Indication: Product used for unknown indication
     Dosage: 1-2 SACHETS DAILY, ON 09_APR-2025
     Route: 064
  11. DISODIUM HYDROGEN CITRATE\SODIUM LAURYL SULFATE [Suspect]
     Active Substance: DISODIUM HYDROGEN CITRATE\SODIUM LAURYL SULFATE
     Indication: Product used for unknown indication
     Dosage: 1 AS NEEDED RECTALLY ON 07-AUG-2025
     Route: 064
  12. MIRTAZAPINE [Suspect]
     Active Substance: MIRTAZAPINE
     Indication: Product used for unknown indication
     Dosage: 45 MILLIGRAM, ON 05-JUN-2022
     Route: 064
  13. OMEPRAZOLE [Suspect]
     Active Substance: OMEPRAZOLE
     Indication: Product used for unknown indication
     Dosage: 40 MILLIGRAMS, QD ON 31-07-2024
     Route: 064
  14. FOLIC ACID [Concomitant]
     Active Substance: FOLIC ACID
     Indication: Product used for unknown indication
     Dosage: 400 MICROGRAM FROM 04-AUG2025 TO 11-AUG-2025 FOR 8 DAYS
     Route: 064

REACTIONS (2)
  - Cleft palate [Not Recovered/Not Resolved]
  - Foetal exposure during pregnancy [Unknown]

NARRATIVE: CASE EVENT DATE: 20251101
